FAERS Safety Report 10022914 (Version 1)
Quarter: 2014Q1

REPORT INFORMATION
  Report Type: Spontaneous
  Country: US (occurrence: US)
  Receive Date: 20140319
  Receipt Date: 20140319
  Transmission Date: 20141002
  Serious: No
  Sender: FDA-Public Use
  Company Number: US-SANOFI-AVENTIS-2013SA037995

PATIENT
  Age: 60 Year
  Sex: Female

DRUGS (1)
  1. TRIAMCINOLONE ACETONIDE - WINTHROP [Suspect]
     Indication: HYPERSENSITIVITY
     Dosage: DRUG TAKEN ON YESTERDAY.
     Route: 045
     Dates: end: 20130408

REACTIONS (1)
  - Urticaria [Recovered/Resolved]
